FAERS Safety Report 9372552 (Version 1)
Quarter: 2013Q2

REPORT INFORMATION
  Report Type: Spontaneous
  Country: JP (occurrence: JP)
  Receive Date: 20130627
  Receipt Date: 20130627
  Transmission Date: 20140414
  Serious: Yes (Hospitalization)
  Sender: FDA-Public Use
  Company Number: JP-PFIZER INC-2013182563

PATIENT
  Age: 78 Year
  Sex: Male
  Weight: 45.9 kg

DRUGS (2)
  1. DISOPYRAMIDE [Suspect]
     Dosage: 150 MG, DAILY
     Dates: start: 2010
  2. CLARITHROMYCIN [Interacting]
     Indication: BRONCHITIS
     Dosage: 400 MG, DAILY
     Dates: start: 201206

REACTIONS (2)
  - Drug interaction [Recovered/Resolved]
  - Hypoglycaemic coma [Recovered/Resolved]
